FAERS Safety Report 25979920 (Version 1)
Quarter: 2025Q4

REPORT INFORMATION
  Report Type: Spontaneous
  Country: US (occurrence: US)
  Receive Date: 20251030
  Receipt Date: 20251030
  Transmission Date: 20260117
  Serious: Yes (Other)
  Sender: NOVO NORDISK
  Company Number: US-NOVOPROD-1547846

PATIENT
  Sex: Female

DRUGS (1)
  1. WEGOVY [Suspect]
     Active Substance: SEMAGLUTIDE
     Indication: Weight control
     Dosage: UNK

REACTIONS (4)
  - Gestational diabetes [Recovered/Resolved]
  - Hepatic steatosis [Recovered/Resolved]
  - Obsessive thoughts [Recovered/Resolved]
  - Maternal exposure during pregnancy [Unknown]
